FAERS Safety Report 16235394 (Version 2)
Quarter: 2019Q4

REPORT INFORMATION
  Report Type: Spontaneous
  Country: US (occurrence: US)
  Receive Date: 20190424
  Receipt Date: 20191101
  Transmission Date: 20200122
  Serious: Yes (Other)
  Sender: FDA-Public Use
  Company Number: US-ASTRAZENECA-2019SE11335

PATIENT
  Age: 18651 Day
  Sex: Male
  Weight: 92.5 kg

DRUGS (10)
  1. SIMVASTATIN. [Concomitant]
     Active Substance: SIMVASTATIN
  2. FLUOCINONIDE. [Concomitant]
     Active Substance: FLUOCINONIDE
  3. NEXIUM [Suspect]
     Active Substance: ESOMEPRAZOLE MAGNESIUM
     Dosage: GENERIC
     Route: 048
     Dates: start: 20110510
  4. LISINOPRIL. [Concomitant]
     Active Substance: LISINOPRIL
  5. FLOMAX [Concomitant]
     Active Substance: TAMSULOSIN HYDROCHLORIDE
  6. NEXIUM [Suspect]
     Active Substance: ESOMEPRAZOLE MAGNESIUM
     Route: 048
     Dates: start: 20110412
  7. HYDROCODONE [Concomitant]
     Active Substance: HYDROCODONE
  8. NEXIUM [Suspect]
     Active Substance: ESOMEPRAZOLE MAGNESIUM
     Route: 048
  9. DIAZEPAM. [Concomitant]
     Active Substance: DIAZEPAM
  10. ARISTOCORT [Concomitant]
     Active Substance: TRIAMCINOLONE DIACETATE

REACTIONS (3)
  - Chronic kidney disease [Unknown]
  - Rebound acid hypersecretion [Unknown]
  - Renal failure [Unknown]

NARRATIVE: CASE EVENT DATE: 20120907
